FAERS Safety Report 9201453 (Version 1)
Quarter: 2013Q2

REPORT INFORMATION
  Report Type: Spontaneous
  Country: DE (occurrence: DE)
  Receive Date: 20130401
  Receipt Date: 20130401
  Transmission Date: 20140414
  Serious: Yes (Other)
  Sender: FDA-Public Use
  Company Number: DE-ELI_LILLY_AND_COMPANY-DE201303008229

PATIENT
  Age: 90 Year
  Sex: Female

DRUGS (9)
  1. CYMBALTA [Suspect]
     Indication: DEPRESSION
     Dosage: 30 MG, UNK
     Route: 048
     Dates: start: 20130128, end: 20130203
  2. CYMBALTA [Suspect]
     Dosage: 60 MG, UNK
     Route: 048
     Dates: start: 20130204, end: 20130210
  3. MIRTAZAPIN [Concomitant]
     Dosage: 30 MG, UNK
     Dates: start: 2010, end: 20130122
  4. MIRTAZAPIN [Concomitant]
     Dosage: 45 MG, UNK
     Dates: start: 20130123
  5. SEROQUEL [Concomitant]
     Dosage: 100 MG, UNK
     Dates: start: 20130118, end: 20130211
  6. TOREM [Concomitant]
     Dosage: 10 MG, UNK
     Dates: start: 2011
  7. LISINOPRIL [Concomitant]
     Dosage: 7.5 MG, UNK
     Dates: start: 2011
  8. SIMVASTATIN [Concomitant]
     Dosage: 20 MG, UNK
     Dates: start: 2011
  9. ALLOPURINOL [Concomitant]
     Dosage: 300 MG, UNK

REACTIONS (2)
  - Hyponatraemia [Recovered/Resolved]
  - Dyspnoea [Recovered/Resolved]
